FAERS Safety Report 6753887-1 (Version None)
Quarter: 2010Q2

REPORT INFORMATION
  Report Type: 
  Country: None (occurrence: None)
  Receive Date: 20100603
  Receipt Date: 20100526
  Transmission Date: 20101027
  Serious: Yes (Hospitalization)
  Sender: FDA-Public Use
  Company Number: IE-AMGEN-QUU408322

PATIENT
  Sex: Female

DRUGS (2)
  1. NEULASTA [Suspect]
     Indication: DRUG USE FOR UNKNOWN INDICATION
     Route: 065
     Dates: start: 20090616
  2. ASPIRIN [Concomitant]

REACTIONS (5)
  - BONE PAIN [None]
  - CHEST PAIN [None]
  - HEADACHE [None]
  - NEUTROPENIA [None]
  - PYREXIA [None]
